FAERS Safety Report 8444880-1 (Version None)
Quarter: 2012Q2

REPORT INFORMATION
  Report Type: 
  Country: None (occurrence: None)
  Receive Date: 20120618
  Receipt Date: 20120617
  Transmission Date: 20120825
  Serious: Yes (Death)
  Sender: FDA-Public Use
  Company Number: PHHY2012AU030934

PATIENT
  Sex: Male

DRUGS (2)
  1. ANTIARRHYTHMICS, CLASS I AND III [Concomitant]
  2. ZOLEDRONOC ACID [Suspect]
     Dosage: 5 MG, UNK
     Route: 042
     Dates: start: 20110519

REACTIONS (2)
  - RENAL FAILURE [None]
  - CARDIAC FAILURE [None]
